FAERS Safety Report 19426929 (Version 1)
Quarter: 2021Q2

REPORT INFORMATION
  Report Type: Spontaneous
  Country: JP (occurrence: JP)
  Receive Date: 20210617
  Receipt Date: 20210617
  Transmission Date: 20210717
  Serious: Yes (Hospitalization)
  Sender: FDA-Public Use
  Company Number: JP-TEVA-2021-JP-1922298

PATIENT
  Age: 61 Year
  Sex: Male

DRUGS (8)
  1. TOLVAPTAN [Suspect]
     Active Substance: TOLVAPTAN
     Indication: PERICARDITIS CONSTRICTIVE
     Dosage: 15 MILLIGRAM DAILY;
     Route: 065
  2. METHYLPREDNISOLONE. [Suspect]
     Active Substance: METHYLPREDNISOLONE
     Indication: PERICARDITIS CONSTRICTIVE
     Dosage: 1 GRAM DAILY;
     Route: 065
  3. PREDNISOLONE. [Suspect]
     Active Substance: PREDNISOLONE
     Route: 065
  4. INFLIXIMAB [Suspect]
     Active Substance: INFLIXIMAB
     Indication: PERICARDITIS CONSTRICTIVE
     Dosage: ADMINISTERED 2 AND 6WEEKS AFTER THE 1ST ADMINISTRATION, AND EVERY 8WEEKS THEREAFTER
     Route: 065
  5. PREDNISOLONE. [Suspect]
     Active Substance: PREDNISOLONE
     Indication: PERICARDITIS CONSTRICTIVE
     Route: 065
  6. FUROSEMIDE. [Suspect]
     Active Substance: FUROSEMIDE
     Indication: PERICARDITIS CONSTRICTIVE
     Dosage: 10 MILLIGRAM DAILY;
     Route: 065
  7. FUROSEMIDE. [Suspect]
     Active Substance: FUROSEMIDE
     Dosage: 40 MILLIGRAM DAILY;
     Route: 065
  8. NIVOLUMAB [Suspect]
     Active Substance: NIVOLUMAB
     Indication: NON-SMALL CELL LUNG CANCER
     Dosage: EVERY 2 WEEKS
     Route: 065
     Dates: start: 201612

REACTIONS (6)
  - Myocarditis [Unknown]
  - Pericarditis constrictive [Recovering/Resolving]
  - Drug ineffective [Unknown]
  - Right ventricular failure [Unknown]
  - Hepatitis [Unknown]
  - Off label use [Unknown]
